FAERS Safety Report 5123448-9 (Version None)
Quarter: 2006Q4

REPORT INFORMATION
  Report Type: 
  Country: None (occurrence: None)
  Receive Date: 20061005
  Receipt Date: 20060922
  Transmission Date: 20070319
  Serious: Yes (Hospitalization)
  Sender: FDA-Public Use
  Company Number: 2006116192

PATIENT

DRUGS (1)
  1. LYRICA [Suspect]
     Indication: NEURALGIA
     Dosage: 150 MG (1 D)

REACTIONS (4)
  - COORDINATION ABNORMAL [None]
  - DYSKINESIA [None]
  - NONSPECIFIC REACTION [None]
  - VERTIGO [None]
